FAERS Safety Report 8721508 (Version 1)
Quarter: 2012Q4

REPORT INFORMATION
  Report Type: 
  Country: US (occurrence: US)
  Receive Date: 20120907
  Receipt Date: 20120907
  Transmission Date: 20130627
  Serious: Yes (Death)
  Sender: FDA-Public Use
  Company Number: US-BAYER-2012-075011

PATIENT
  Age: 22 Year
  Sex: Female

DRUGS (1)
  1. ULTRAVIST [Suspect]
     Indication: COMPUTERISED TOMOGRAM ABDOMEN
     Dosage: 125 ml, ONCE
     Route: 042

REACTIONS (5)
  - Anaphylactic reaction [Fatal]
  - Palpitations [Fatal]
  - Dyspnoea [Fatal]
  - Acute pulmonary oedema [Fatal]
  - Cardiac arrest [Fatal]
